FAERS Safety Report 9424149 (Version 1)
Quarter: 2013Q3

REPORT INFORMATION
  Report Type: Spontaneous
  Country: US (occurrence: US)
  Receive Date: 20130729
  Receipt Date: 20130729
  Transmission Date: 20140515
  Serious: No
  Sender: FDA-Public Use
  Company Number: US-BAYER-2013-090902

PATIENT
  Sex: Female

DRUGS (6)
  1. BETASERON [Suspect]
     Dosage: 0.3 MG, UNK
  2. FLAXSEED OIL [Concomitant]
  3. ALLEGRA [Concomitant]
     Dosage: 30 MG, UNK
  4. TEMAZEPAM [Concomitant]
     Dosage: 15 MG, UNK
  5. BACLOFEN [Concomitant]
     Dosage: 10 MG, UNK
  6. FISH OIL [Concomitant]

REACTIONS (1)
  - Injection site mass [Unknown]
